FAERS Safety Report 7158122-0 (Version None)
Quarter: 2010Q4

REPORT INFORMATION
  Report Type: 
  Country: None (occurrence: None)
  Receive Date: 20101214
  Receipt Date: 20100428
  Transmission Date: 20110411
  Serious: No
  Sender: FDA-Public Use
  Company Number: US-ASTRAZENECA-2010SE19304

PATIENT
  Age: 69 Year
  Sex: Female
  Weight: 144 kg

DRUGS (6)
  1. CRESTOR [Suspect]
     Indication: HYPERCHOLESTEROLAEMIA
     Route: 048
     Dates: start: 20100301
  2. ATENOLOL [Concomitant]
  3. LISINOPRIL [Concomitant]
  4. PROCRIT [Concomitant]
  5. FERROUS SULFATE [Concomitant]
  6. FISH OIL [Concomitant]

REACTIONS (1)
  - URINE COLOUR ABNORMAL [None]
